FAERS Safety Report 6394975-1 (Version None)
Quarter: 2009Q4

REPORT INFORMATION
  Report Type: 
  Country: None (occurrence: None)
  Receive Date: 20091009
  Receipt Date: 20090929
  Transmission Date: 20100525
  Serious: Yes (Hospitalization)
  Sender: FDA-Public Use
  Company Number: JP-PFIZER INC-2009269492

PATIENT
  Age: 57 Year

DRUGS (15)
  1. MIGLITOL [Suspect]
     Indication: DIABETES MELLITUS
     Dosage: UNK MG, UNK
     Route: 048
     Dates: start: 20090716, end: 20090903
  2. LUPRAC [Concomitant]
     Indication: HYPERTENSION
     Dosage: 4 MG, UNK
     Route: 048
     Dates: start: 20090301
  3. TAKEPRON [Concomitant]
     Indication: GASTRITIS
     Dosage: 15 MG, UNK
     Route: 048
     Dates: start: 20090407
  4. DIOVAN [Concomitant]
     Indication: HYPERTENSION
     Dosage: 160 MG, UNK
     Route: 048
     Dates: start: 19980101
  5. CALBLOCK [Concomitant]
     Indication: HYPERTENSION
     Dosage: 16 MG, UNK
     Route: 048
     Dates: start: 19980101
  6. WARFARIN [Concomitant]
     Indication: ATRIAL FIBRILLATION
     Dosage: 1 MG, UNK
     Route: 048
     Dates: start: 19980101
  7. ARTIST [Concomitant]
     Indication: CONGESTIVE CARDIOMYOPATHY
     Dosage: 1.25 MG, UNK
     Route: 048
     Dates: start: 19980101
  8. PREDONINE [Concomitant]
     Indication: NEPHROTIC SYNDROME
     Dosage: 5 MG, UNK
     Route: 048
     Dates: start: 20090525
  9. PL [Concomitant]
     Dosage: UNK
     Route: 048
  10. CALONAL [Concomitant]
     Dosage: 600 MG, UNK
     Route: 048
  11. ZYLORIC [Concomitant]
     Indication: HYPERURICAEMIA
     Dosage: 100 MG, UNK
     Route: 048
     Dates: start: 20090813, end: 20090827
  12. ASPIRIN [Concomitant]
     Dosage: 100 MG, UNK
     Route: 048
     Dates: end: 20090904
  13. LOCHOL [Concomitant]
     Dosage: 30 MG, UNK
     Route: 048
     Dates: end: 20090904
  14. NEORAL [Concomitant]
     Indication: NEPHROTIC SYNDROME
     Dosage: 100 MG, UNK
     Route: 048
     Dates: start: 20090701
  15. BENET [Concomitant]
     Indication: OSTEOPOROSIS PROPHYLAXIS
     Dosage: UNK
     Dates: start: 20090522

REACTIONS (1)
  - HEPATIC FUNCTION ABNORMAL [None]
